FAERS Safety Report 25518740 (Version 1)
Quarter: 2025Q3

REPORT INFORMATION
  Report Type: Spontaneous
  Country: GB (occurrence: GB)
  Receive Date: 20250704
  Receipt Date: 20250704
  Transmission Date: 20251020
  Serious: Yes (Other)
  Sender: TEVA
  Company Number: GB-MHRA-TPP46528323C10087573YC1750840184674

PATIENT
  Age: 49 Year
  Sex: Male
  Weight: 95 kg

DRUGS (3)
  1. AMLODIPINE [Suspect]
     Active Substance: AMLODIPINE BESYLATE
     Indication: Ill-defined disorder
     Dosage: TAKE ONE TABLET ONCE A DAY, 10 MG DAILY
     Route: 065
     Dates: start: 20241106
  2. RAMIPRIL [Concomitant]
     Active Substance: RAMIPRIL
     Indication: Ill-defined disorder
     Dosage: TAKE ONE CAPSULE ONCE A DAY, 1 DOSAGE FORMS DAILY
     Dates: start: 20250625
  3. HUXD3 [Concomitant]
     Indication: Ill-defined disorder
     Dosage: TAKE TWO CAPSULES ONCE WEEKLY FOR 7 WEEKS, DURATION: 50 DAYS
     Dates: start: 20250414, end: 20250602

REACTIONS (1)
  - Joint swelling [Recovered/Resolved]
